FAERS Safety Report 6346240-6 (Version None)
Quarter: 2009Q3

REPORT INFORMATION
  Report Type: 
  Country: None (occurrence: None)
  Receive Date: 20090909
  Receipt Date: 20090901
  Transmission Date: 20100115
  Serious: Yes (Hospitalization)
  Sender: FDA-Public Use
  Company Number: PHHO2009JP10970

PATIENT
  Sex: Female
  Weight: 62 kg

DRUGS (4)
  1. CGS 20267 T30748+TAB [Suspect]
     Indication: BREAST CANCER
     Dosage: 2.5 MG, QD
     Route: 048
     Dates: start: 20070816
  2. GLIMICRON [Concomitant]
     Indication: DIABETES MELLITUS
  3. TOWARAT [Concomitant]
     Indication: HYPERTENSION
  4. BEZATATE [Concomitant]
     Indication: HYPERCHOLESTEROLAEMIA

REACTIONS (1)
  - HEPATIC STEATOSIS [None]
